FAERS Safety Report 16000147 (Version 1)
Quarter: 2019Q1

REPORT INFORMATION
  Report Type: Spontaneous
  Country: US (occurrence: US)
  Receive Date: 20190225
  Receipt Date: 20190225
  Transmission Date: 20190418
  Serious: No
  Sender: FDA-Public Use
  Company Number: US-BAYER-2019-038076

PATIENT
  Sex: Female

DRUGS (3)
  1. LEVOTHYROXINE. [Concomitant]
     Active Substance: LEVOTHYROXINE
     Indication: THYROID DISORDER
     Dosage: 75 MG, QD
  2. ALEVE [Suspect]
     Active Substance: NAPROXEN SODIUM
     Dosage: UNK
  3. DIPHENHYDRAMINE;IBUPROFEN [Concomitant]
     Active Substance: DIPHENHYDRAMINE\IBUPROFEN

REACTIONS (1)
  - Dyspnoea [Recovered/Resolved]
